FAERS Safety Report 8066845-4 (Version None)
Quarter: 2012Q1

REPORT INFORMATION
  Report Type: 
  Country: None (occurrence: None)
  Receive Date: 20120124
  Receipt Date: 20120120
  Transmission Date: 20120608
  Serious: Yes (Hospitalization, Other)
  Sender: FDA-Public Use
  Company Number: US-GILEAD-2012-0049049

PATIENT
  Sex: Female

DRUGS (8)
  1. LETAIRIS [Suspect]
     Indication: PULMONARY VENO-OCCLUSIVE DISEASE
  2. LETAIRIS [Suspect]
     Indication: SLEEP APNOEA SYNDROME
  3. LETAIRIS [Suspect]
     Indication: TOBACCO USER
  4. LETAIRIS [Suspect]
     Indication: DIABETES MELLITUS
  5. LETAIRIS [Suspect]
     Indication: RENAL FAILURE
  6. LETAIRIS [Suspect]
     Indication: HYPERTENSION
  7. LETAIRIS [Suspect]
     Indication: PULMONARY HYPERTENSION
     Dosage: 5 MG, UNK
     Route: 048
     Dates: start: 20110805
  8. TYVASO [Concomitant]

REACTIONS (5)
  - FATIGUE [None]
  - BIOPSY LUNG [None]
  - DYSPNOEA [None]
  - PULMONARY VENO-OCCLUSIVE DISEASE [None]
  - MIDDLE INSOMNIA [None]
